FAERS Safety Report 12844853 (Version 1)
Quarter: 2016Q4

REPORT INFORMATION
  Report Type: Spontaneous
  Country: US (occurrence: US)
  Receive Date: 20161013
  Receipt Date: 20161013
  Transmission Date: 20170207
  Serious: Yes (Hospitalization)
  Sender: FDA-Public Use
  Company Number: US-JNJFOC-20161008786

PATIENT
  Age: 30 Year
  Sex: Male

DRUGS (6)
  1. ADALIMUMAB [Concomitant]
     Active Substance: ADALIMUMAB
     Route: 065
  2. MERCAPTOPURINE. [Suspect]
     Active Substance: MERCAPTOPURINE
     Indication: CROHN^S DISEASE
     Route: 065
  3. INFLIXIMAB, RECOMBINANT [Suspect]
     Active Substance: INFLIXIMAB
     Indication: CROHN^S DISEASE
     Route: 042
     Dates: start: 201403
  4. MERCAPTOPURINE. [Suspect]
     Active Substance: MERCAPTOPURINE
     Indication: CROHN^S DISEASE
     Route: 065
  5. AMPHOTERICIN B. [Suspect]
     Active Substance: AMPHOTERICIN B
     Indication: TRANSAMINASES INCREASED
     Route: 065
  6. ADALIMUMAB [Concomitant]
     Active Substance: ADALIMUMAB
     Route: 065

REACTIONS (2)
  - Renal impairment [Unknown]
  - Histoplasmosis disseminated [Recovered/Resolved]
